FAERS Safety Report 4900258-6 (Version None)
Quarter: 2006Q1

REPORT INFORMATION
  Report Type: 
  Country: None (occurrence: None)
  Receive Date: 20060203
  Receipt Date: 20050926
  Transmission Date: 20060701
  Serious: Yes (Life-Threatening, Hospitalization)
  Sender: FDA-Public Use
  Company Number: 2005AP05083

PATIENT
  Age: 27773 Day
  Sex: Male

DRUGS (16)
  1. DIPRIVAN [Suspect]
     Indication: SEDATION
     Route: 042
     Dates: start: 20050903
  2. DIPRIVAN [Suspect]
     Route: 042
     Dates: start: 20050903
  3. DIPRIVAN [Suspect]
     Route: 042
     Dates: start: 20050903
  4. DIPRIVAN [Suspect]
     Route: 042
     Dates: start: 20050903
  5. DIPRIVAN [Suspect]
     Route: 042
     Dates: start: 20050905
  6. DIPRIVAN [Suspect]
     Route: 042
     Dates: start: 20050905
  7. DIPRIVAN [Suspect]
     Route: 042
     Dates: start: 20050905
  8. DIPRIVAN [Suspect]
     Route: 042
     Dates: start: 20050905
  9. DIPRIVAN [Suspect]
     Route: 042
     Dates: start: 20050905
  10. DIPRIVAN [Suspect]
     Route: 042
     Dates: start: 20050906, end: 20050906
  11. DILTIAZEM HYDROCHLORIDE [Concomitant]
     Indication: BLOOD PRESSURE INCREASED
     Dosage: 5 ML/H
     Route: 041
     Dates: start: 20050903, end: 20050908
  12. ALEVIATIN [Concomitant]
     Indication: CONVULSION PROPHYLAXIS
     Route: 041
     Dates: start: 20050903, end: 20050908
  13. GASTER [Concomitant]
     Indication: GASTRIC HAEMORRHAGE
     Route: 041
     Dates: start: 20050903, end: 20050908
  14. GLYCEREB [Concomitant]
     Indication: INTRACRANIAL PRESSURE INCREASED
     Route: 041
     Dates: start: 20050903, end: 20050908
  15. LASIX [Concomitant]
     Route: 041
     Dates: start: 20050904, end: 20050904
  16. RASENAZOLIN [Concomitant]
     Indication: INFECTION PROPHYLAXIS
     Route: 041
     Dates: start: 20050904, end: 20050908

REACTIONS (15)
  - CARDIAC FAILURE [None]
  - CARDIOMEGALY [None]
  - CONFUSIONAL STATE [None]
  - DELIRIUM [None]
  - DISORIENTATION [None]
  - EPILEPSY [None]
  - HAEMODIALYSIS [None]
  - HYPERSOMNIA [None]
  - LETHARGY [None]
  - MYOCARDIAL INFARCTION [None]
  - RENAL FAILURE [None]
  - RESPIRATORY DISORDER [None]
  - RESPIRATORY FAILURE [None]
  - RHABDOMYOLYSIS [None]
  - STUPOR [None]
